FAERS Safety Report 10364958 (Version 2)
Quarter: 2014Q3

REPORT INFORMATION
  Report Type: Spontaneous
  Country: JP (occurrence: JP)
  Receive Date: 20140806
  Receipt Date: 20140806
  Transmission Date: 20150326
  Serious: Yes (Other)
  Sender: FDA-Public Use
  Company Number: JP-SA-2014SA067578

PATIENT
  Sex: Female

DRUGS (1)
  1. DAONIL [Suspect]
     Active Substance: GLYBURIDE
     Indication: TYPE 2 DIABETES MELLITUS
     Route: 048
     Dates: end: 20091127

REACTIONS (3)
  - Hypoglycaemia [Recovered/Resolved]
  - Unresponsive to stimuli [Recovered/Resolved]
  - Hemiparesis [Recovered/Resolved]

NARRATIVE: CASE EVENT DATE: 20091127
